FAERS Safety Report 6396423-4 (Version None)
Quarter: 2009Q4

REPORT INFORMATION
  Report Type: 
  Country: None (occurrence: None)
  Receive Date: 20091012
  Receipt Date: 20090529
  Transmission Date: 20100525
  Serious: Yes (Other)
  Sender: FDA-Public Use
  Company Number: PHEH2009US12022

PATIENT
  Sex: Female

DRUGS (1)
  1. RECLAST [Suspect]

REACTIONS (5)
  - EYE SWELLING [None]
  - NEPHROLITHIASIS [None]
  - PRURITUS [None]
  - RASH [None]
  - SCAR [None]
